FAERS Safety Report 24390030 (Version 3)
Quarter: 2025Q1

REPORT INFORMATION
  Report Type: Spontaneous
  Country: US (occurrence: US)
  Receive Date: 20241003
  Receipt Date: 20250123
  Transmission Date: 20250408
  Serious: Yes (Hospitalization, Other)
  Sender: SANOFI AVENTIS
  Company Number: US-SA-2024SA273592

PATIENT
  Sex: Female

DRUGS (9)
  1. KEVZARA [Suspect]
     Active Substance: SARILUMAB
  2. TOCILIZUMAB [Concomitant]
     Active Substance: TOCILIZUMAB
  3. CANAKINUMAB [Concomitant]
     Active Substance: CANAKINUMAB
  4. RUXOLITINIB [Concomitant]
     Active Substance: RUXOLITINIB
  5. METHOTREXATE SODIUM [Concomitant]
     Active Substance: METHOTREXATE SODIUM
  6. CYCLOSPORINE [Concomitant]
     Active Substance: CYCLOSPORINE
  7. VORICONAZOLE [Concomitant]
     Active Substance: VORICONAZOLE
  8. MEDROL [Concomitant]
     Active Substance: METHYLPREDNISOLONE
  9. PREDNISONE [Concomitant]
     Active Substance: PREDNISONE

REACTIONS (7)
  - Haematemesis [Unknown]
  - Nausea [Unknown]
  - Diarrhoea [Unknown]
  - Pyrexia [Unknown]
  - Pleuritic pain [Unknown]
  - Drug ineffective [Unknown]
  - Inappropriate schedule of product administration [Unknown]
